FAERS Safety Report 11608119 (Version 1)
Quarter: 2015Q4

REPORT INFORMATION
  Report Type: Spontaneous
  Country: FR (occurrence: FR)
  Receive Date: 20151007
  Receipt Date: 20151007
  Transmission Date: 20160304
  Serious: Yes (Hospitalization, Disabling)
  Sender: FDA-Public Use
  Company Number: PHHY2015FR074734

PATIENT
  Age: 78 Year
  Sex: Male
  Weight: 65 kg

DRUGS (5)
  1. STALEVO [Suspect]
     Active Substance: CARBIDOPA\ENTACAPONE\LEVODOPA
     Dosage: (INCREASED TO 150 MG AT 7 AM, 125 MG AT 10 AM, 150 MG AT 1 PM, 125 MG AT 4 PM AND 150 MG AT 7 PM
     Route: 048
     Dates: start: 20150618
  2. STALEVO [Suspect]
     Active Substance: CARBIDOPA\ENTACAPONE\LEVODOPA
     Indication: PARKINSON^S DISEASE
     Dosage: (150 MG ON THE MORNING, 100 MG AT 10 AM, 12 AM, 4 PM AND EVENING)
     Route: 048
     Dates: start: 201503
  3. SINEMET [Concomitant]
     Active Substance: CARBIDOPA\LEVODOPA
     Indication: PRODUCT USED FOR UNKNOWN INDICATION
     Dosage: 1 DF, QD
     Route: 065
     Dates: start: 20150506
  4. STALEVO [Suspect]
     Active Substance: CARBIDOPA\ENTACAPONE\LEVODOPA
     Dosage: 5 DF, QD 125 MG/ 31.25 MG/ 200 MG (7 AM, 10 AM, 1 PM, 4 PM, 7 PM)
     Route: 048
     Dates: start: 20150506
  5. NEUPRO [Concomitant]
     Active Substance: ROTIGOTINE
     Indication: PRODUCT USED FOR UNKNOWN INDICATION
     Dosage: 4 MG/ 24 H
     Route: 062
     Dates: start: 20150506

REACTIONS (5)
  - Dyskinesia [Not Recovered/Not Resolved]
  - Thinking abnormal [Not Recovered/Not Resolved]
  - Parkinson^s disease [Not Recovered/Not Resolved]
  - Fall [Recovered/Resolved]
  - General physical condition abnormal [Recovering/Resolving]

NARRATIVE: CASE EVENT DATE: 20150617
